FAERS Safety Report 22536966 (Version 1)
Quarter: 2023Q2

REPORT INFORMATION
  Report Type: Spontaneous
  Country: US (occurrence: US)
  Receive Date: 20230608
  Receipt Date: 20230608
  Transmission Date: 20230721
  Serious: Yes (Hospitalization, Other)
  Sender: FDA-Public Use
  Company Number: US-JUBILANT CADISTA PHARMACEUTICALS-2023JUB00219

PATIENT
  Age: 80 Year
  Sex: Female

DRUGS (1)
  1. ALENDRONATE [Suspect]
     Active Substance: ALENDRONATE SODIUM
     Indication: Osteoporosis
     Dosage: UNK

REACTIONS (4)
  - Weight decreased [Recovered/Resolved]
  - Electrolyte imbalance [Recovered/Resolved]
  - Oesophageal ulcer [Recovered/Resolved]
  - Oesophageal stenosis [Recovered/Resolved]
